FAERS Safety Report 18415628 (Version 4)
Quarter: 2020Q4

REPORT INFORMATION
  Report Type: Report from Study
  Country: None (occurrence: BE)
  Receive Date: 20201022
  Receipt Date: 20201221
  Transmission Date: 20210114
  Serious: Yes (Life-Threatening, Hospitalization)
  Sender: FDA-Public Use
  Company Number: BE-ABBVIE-20K-013-3617652-00

PATIENT
  Age: 71 Year
  Sex: Male

DRUGS (3)
  1. DUODOPA [Suspect]
     Active Substance: CARBIDOPA\LEVODOPA
     Dosage: MD= 0.0 ML, CD= 2.6 ML/HR DURING 16HRS, ED= 1.0 ML
     Route: 050
     Dates: start: 20200514, end: 202010
  2. DUODOPA [Suspect]
     Active Substance: CARBIDOPA\LEVODOPA
     Dosage: MD= 0.0 ML, CD= 2.5 ML/HR DURING 16HRS, ED= 1.0 ML
     Route: 050
     Dates: start: 20201217
  3. DUODOPA [Suspect]
     Active Substance: CARBIDOPA\LEVODOPA
     Indication: PARKINSON^S DISEASE
     Dosage: UNKNOWN DOSAGES
     Route: 050
     Dates: start: 20100208, end: 20200514

REACTIONS (5)
  - Respiratory tract infection [Unknown]
  - Cholelithiasis [Unknown]
  - Off label use [Not Recovered/Not Resolved]
  - Body temperature increased [Recovering/Resolving]
  - Palliative care [Unknown]

NARRATIVE: CASE EVENT DATE: 2020
